FAERS Safety Report 22172395 (Version 3)
Quarter: 2024Q2

REPORT INFORMATION
  Report Type: Spontaneous
  Country: RU (occurrence: None)
  Receive Date: 20230404
  Receipt Date: 20240517
  Transmission Date: 20240717
  Serious: Yes (Other)
  Sender: FDA-Public Use
  Company Number: RU-ROCHE-3318925

PATIENT
  Age: 54 Year
  Sex: Female

DRUGS (9)
  1. TRASTUZUMAB [Suspect]
     Active Substance: TRASTUZUMAB
     Indication: Breast cancer
     Route: 065
  2. KADCYLA [Suspect]
     Active Substance: ADO-TRASTUZUMAB EMTANSINE
     Indication: Breast cancer
     Route: 042
  3. DOCETAXEL [Suspect]
     Active Substance: DOCETAXEL\DOCETAXEL ANHYDROUS
     Indication: Breast cancer
     Route: 065
  4. PREDNISOLONE [Concomitant]
     Active Substance: PREDNISOLONE
  5. TRIMETAZIDINE [Concomitant]
     Active Substance: TRIMETAZIDINE
  6. SAMELIX [Concomitant]
  7. ADEMETIONINE [Concomitant]
     Active Substance: ADEMETIONINE
  8. OMEPRAZOLE [Concomitant]
     Active Substance: DONEPEZIL HYDROCHLORIDE\OMEPRAZOLE\OMEPRAZOLE MAGNESIUM
  9. XARELTO [Concomitant]
     Active Substance: RIVAROXABAN

REACTIONS (19)
  - Pneumonia [Unknown]
  - Arteriovenous malformation [Unknown]
  - Leukopenia [Unknown]
  - Hyperbilirubinaemia [Unknown]
  - Arnold-Chiari malformation [Unknown]
  - Pulmonary fibrosis [Unknown]
  - Congenital hypothyroidism [Unknown]
  - Disease progression [Unknown]
  - Coronavirus infection [Unknown]
  - Hepatic cyst [Unknown]
  - Ovarian cyst [Unknown]
  - Splenic calcification [Unknown]
  - Splenomegaly [Unknown]
  - Pain [Unknown]
  - Respiratory tract infection [Unknown]
  - Blood thyroid stimulating hormone increased [Unknown]
  - Oropharyngeal pain [Unknown]
  - Cough [Unknown]
  - Body temperature increased [Unknown]
